APPROVED DRUG PRODUCT: TEN-K
Active Ingredient: POTASSIUM CHLORIDE
Strength: 10MEQ
Dosage Form/Route: TABLET, EXTENDED RELEASE;ORAL
Application: N019381 | Product #001
Applicant: NOVARTIS PHARMACEUTICALS CORP
Approved: Apr 16, 1986 | RLD: No | RS: No | Type: DISCN